FAERS Safety Report 17041595 (Version 1)
Quarter: 2019Q4

REPORT INFORMATION
  Report Type: Spontaneous
  Country: US (occurrence: US)
  Receive Date: 20191016
  Receipt Date: 20191016
  Transmission Date: 20200122
  Serious: Yes (Death, Hospitalization)
  Sender: FDA-Public Use
  Company Number: None

PATIENT
  Age: 65 Year
  Sex: Female

DRUGS (24)
  1. CALCITRIOL. [Concomitant]
     Active Substance: CALCITRIOL
  2. CELLCEPT [Concomitant]
     Active Substance: MYCOPHENOLATE MOFETIL\MYCOPHENOLATE MOFETIL HYDROCHLORIDE
  3. OMEPRAZOLE. [Concomitant]
     Active Substance: OMEPRAZOLE
  4. NIFEDIPINE. [Concomitant]
     Active Substance: NIFEDIPINE
  5. DOXAZOSIN [Concomitant]
     Active Substance: DOXAZOSIN MESYLATE
  6. PRAVASTATIN. [Concomitant]
     Active Substance: PRAVASTATIN
  7. NEPHRO VITE RX [Concomitant]
     Active Substance: ASCORBIC ACID\BIOTIN\CALCIUM PANTOTHENATE\CYANOCOBALAMIN\FOLIC ACID\NIACINAMIDE\PYRIDOXINE HYDROCHLORIDE\RIBOFLAVIN\THIAMINE MONONITRATE
  8. BETAMETHASONE DIPROPIONATE TOP OINT [Concomitant]
  9. SIDENAFIL [Concomitant]
     Active Substance: SILDENAFIL
  10. CLONIDINE PATCH [Concomitant]
     Active Substance: CLONIDINE
  11. LIOTHYRONINE [Concomitant]
     Active Substance: LIOTHYRONINE
  12. CLONIDINE- GABAPENT-KEATMIN-LIDOC 0.2-6-15-105 IN PLO TOP GEL [Concomitant]
  13. TRAMADOL. [Concomitant]
     Active Substance: TRAMADOL
  14. DOXAZOSIN [Concomitant]
     Active Substance: DOXAZOSIN MESYLATE
  15. ZOFRAN [Concomitant]
     Active Substance: ONDANSETRON HYDROCHLORIDE
  16. LEVOTHYROXINE. [Concomitant]
     Active Substance: LEVOTHYROXINE
  17. SEVELAMER [Concomitant]
     Active Substance: SEVELAMER
  18. HYDROMORPHONE [Concomitant]
     Active Substance: HYDROMORPHONE
  19. PREDNISONE. [Concomitant]
     Active Substance: PREDNISONE
  20. ALLOPURINOL. [Concomitant]
     Active Substance: ALLOPURINOL
  21. TACROLIMUS TOP OINT [Concomitant]
  22. VOLTAREN TOP GEL [Concomitant]
  23. OPSUMIT [Suspect]
     Active Substance: MACITENTAN
     Indication: PULMONARY ARTERIAL HYPERTENSION
     Route: 048
     Dates: start: 201703, end: 201909
  24. ELMA TOP CREAM [Concomitant]

REACTIONS (1)
  - Cerebrovascular accident [None]

NARRATIVE: CASE EVENT DATE: 20190918
